FAERS Safety Report 5420261-X (Version None)
Quarter: 2007Q3

REPORT INFORMATION
  Report Type: 
  Country: None (occurrence: None)
  Receive Date: 20070718
  Receipt Date: 20060816
  Transmission Date: 20080115
  Serious: Yes (Hospitalization, Other)
  Sender: FDA-Public Use
  Company Number: 2006080465

PATIENT
  Age: 49 Year
  Sex: Female
  Weight: 115.6672 kg

DRUGS (3)
  1. CELEBREX [Suspect]
     Indication: ARTHRITIS
     Dosage: 200 MG (2 IN 1 D)
  2. PLAVIX [Concomitant]
  3. ISOSORBIDE (ISOSORBIDE) [Concomitant]

REACTIONS (2)
  - MYOCARDIAL INFARCTION [None]
  - PAIN IN EXTREMITY [None]
